FAERS Safety Report 11302716 (Version 1)
Quarter: 2015Q3

REPORT INFORMATION
  Report Type: Spontaneous
  Country: US (occurrence: None)
  Receive Date: 20150723
  Receipt Date: 20150723
  Transmission Date: 20151125
  Serious: No
  Sender: FDA-Public Use
  Company Number: None

PATIENT
  Age: 26 Year
  Sex: Female
  Weight: 104.33 kg

DRUGS (2)
  1. CERTRALINE [Concomitant]
  2. MIRENA [Suspect]
     Active Substance: LEVONORGESTREL

REACTIONS (6)
  - Pain [None]
  - Mood swings [None]
  - Muscle spasms [None]
  - Dizziness [None]
  - Menorrhagia [None]
  - Device difficult to use [None]
